FAERS Safety Report 10103172 (Version 1)
Quarter: 2014Q2

REPORT INFORMATION
  Report Type: Spontaneous
  Country: US (occurrence: US)
  Receive Date: 20140424
  Receipt Date: 20140424
  Transmission Date: 20141212
  Serious: No
  Sender: FDA-Public Use
  Company Number: US-BRISTOL-MYERS SQUIBB COMPANY-20148771

PATIENT
  Age: 80 Year
  Sex: Male
  Weight: 113.38 kg

DRUGS (12)
  1. ELIQUIS [Suspect]
  2. XANAX [Concomitant]
  3. AMLODIPINE [Concomitant]
  4. TAMSULOSIN [Concomitant]
  5. CRESTOR [Concomitant]
  6. METOPROLOL [Concomitant]
  7. PROTONIX [Concomitant]
  8. IMDUR [Concomitant]
  9. TRICOR [Concomitant]
  10. TRIAMTERENE + HCTZ [Concomitant]
     Dosage: 1 DF=37.5/25 MG
  11. ASPIRIN [Concomitant]
  12. VITAMIN B12 [Concomitant]

REACTIONS (1)
  - Rash pruritic [Unknown]
